FAERS Safety Report 4407279-0 (Version None)
Quarter: 2004Q3

REPORT INFORMATION
  Report Type: 
  Country: None (occurrence: None)
  Receive Date: 20040721
  Receipt Date: 20040630
  Transmission Date: 20050211
  Serious: Yes (Hospitalization, Other)
  Sender: FDA-Public Use
  Company Number: USA040771558

PATIENT
  Age: 63 Year
  Sex: Female
  Weight: 95 kg

DRUGS (1)
  1. FORTEO [Suspect]
     Indication: OSTEOPOROSIS
     Dosage: 20 UG DAY
     Dates: start: 20020101

REACTIONS (4)
  - ARTHROPATHY [None]
  - CALCINOSIS [None]
  - HIP ARTHROPLASTY [None]
  - PHARMACEUTICAL PRODUCT COMPLAINT [None]
